FAERS Safety Report 4551211-6 (Version None)
Quarter: 2005Q1

REPORT INFORMATION
  Report Type: 
  Country: None (occurrence: None)
  Receive Date: 20050111
  Receipt Date: 20050111
  Transmission Date: 20050727
  Serious: No
  Sender: FDA-Public Use
  Company Number: None

PATIENT
  Sex: Female

DRUGS (1)
  1. IMURAN [Suspect]
     Dosage: 5 PO QAM

REACTIONS (2)
  - CHROMATURIA [None]
  - URINE ODOUR ABNORMAL [None]
